FAERS Safety Report 8095078-0 (Version None)
Quarter: 2012Q1

REPORT INFORMATION
  Report Type: 
  Country: None (occurrence: None)
  Receive Date: 20120125
  Receipt Date: 20120116
  Transmission Date: 20120608
  Serious: Yes (Hospitalization)
  Sender: FDA-Public Use
  Company Number: 7106929

PATIENT
  Age: 37 Year
  Sex: Female

DRUGS (3)
  1. PENTASA (MESALAZINE) (MESALAZINE) [Concomitant]
  2. BION 3 ADULTE (TABLET) (MULTIVITAMINS, MINERALS, PROBIOTICS) [Suspect]
     Indication: FATIGUE
     Route: 048
     Dates: start: 20120101
  3. LEVOTHYROXINE SODIUM [Suspect]
     Indication: THYROIDECTOMY
     Dosage: 87.5 MCG (87.5 MCG, 1 D)
     Route: 048
     Dates: start: 20090101

REACTIONS (3)
  - MALAISE [None]
  - FATIGUE [None]
  - HYPERTHYROIDISM [None]
